FAERS Safety Report 23929043 (Version 2)
Quarter: 2024Q2

REPORT INFORMATION
  Report Type: Report from Study
  Country: CN (occurrence: CN)
  Receive Date: 20240601
  Receipt Date: 20240610
  Transmission Date: 20240715
  Serious: Yes (Other)
  Sender: FDA-Public Use
  Company Number: CN-BAYER-2024A079125

PATIENT
  Age: 87 Year
  Sex: Female

DRUGS (1)
  1. RIVAROXABAN [Suspect]
     Active Substance: RIVAROXABAN
     Indication: Atrial fibrillation
     Dosage: 15 MG, QD
     Route: 048

REACTIONS (2)
  - Gastrointestinal haemorrhage [Recovering/Resolving]
  - Coagulopathy [Recovering/Resolving]
